FAERS Safety Report 7771644-4 (Version None)
Quarter: 2011Q3

REPORT INFORMATION
  Report Type: 
  Country: None (occurrence: None)
  Receive Date: 20110922
  Receipt Date: 20100811
  Transmission Date: 20111222
  Serious: No
  Sender: FDA-Public Use
  Company Number: US-ASTRAZENECA-2008UW04666

PATIENT
  Age: 591 Month
  Sex: Male

DRUGS (16)
  1. FUROSEMIDE [Concomitant]
  2. ISOSORBIDE DN [Concomitant]
  3. HYDRALAZINE HCL [Concomitant]
  4. SEROQUEL [Suspect]
     Dosage: 100-300 MG
     Route: 048
     Dates: start: 20060608
  5. PLAVIX [Concomitant]
  6. SEROQUEL [Suspect]
     Dosage: 100-200 MG
     Route: 048
     Dates: start: 20060608, end: 20070427
  7. SPIRONOLACTONE [Concomitant]
  8. ALBUTEROL [Concomitant]
  9. COREG [Concomitant]
  10. AMBIEN [Concomitant]
  11. ZETIA [Concomitant]
  12. AMIODARONE HCL [Concomitant]
  13. ATORVASTATIN [Concomitant]
  14. SEROQUEL [Suspect]
     Indication: DEPRESSION
     Dosage: 100-200 MG
     Route: 048
     Dates: start: 20060518, end: 20070601
  15. LISINOPRIL [Concomitant]
  16. ABILIFY [Concomitant]
     Dosage: 10-20 MG
     Dates: start: 20070601, end: 20071101

REACTIONS (7)
  - DIABETIC COMPLICATION [None]
  - BLOOD CHOLESTEROL INCREASED [None]
  - TYPE 2 DIABETES MELLITUS [None]
  - RENAL DISORDER [None]
  - HYPERGLYCAEMIA [None]
  - ADVERSE DRUG REACTION [None]
  - HYPERLIPIDAEMIA [None]
